FAERS Safety Report 9531018 (Version 1)
Quarter: 2013Q2

REPORT INFORMATION
  Report Type: Spontaneous
  Country: US (occurrence: None)
  Receive Date: 20130418
  Receipt Date: 20130418
  Transmission Date: 20140414
  Serious: Yes (Disabling)
  Sender: FDA-Public Use
  Company Number: 1205USA02143

PATIENT
  Sex: Female

DRUGS (7)
  1. SINGULAIR (MONTELUKAST SODIUM) TABLET [Suspect]
     Indication: ASTHMA
     Route: 048
  2. DULERA (MOMETASONE FUROATE (+) FORMOTEROL FUMARATE) [Concomitant]
  3. PREVACID (LANSOPRAZOLE) [Concomitant]
  4. XOPENEX (LEVALBUTEROL HYDROCHLORIDE) [Concomitant]
  5. ALLEGRA [Concomitant]
  6. MK-0152 (HYDROCHLOROTHIAZIDE) [Concomitant]
  7. ADVIL (IBUPROFEN) [Concomitant]

REACTIONS (1)
  - Gastroenteritis [None]
